FAERS Safety Report 11269523 (Version 1)
Quarter: 2015Q3

REPORT INFORMATION
  Report Type: Spontaneous
  Country: FR (occurrence: None)
  Receive Date: 20150710
  Receipt Date: 20150710
  Transmission Date: 20151125
  Serious: Yes (Hospitalization)
  Sender: FDA-Public Use
  Company Number: FK201503073

PATIENT
  Age: 75 Year

DRUGS (10)
  1. INVANZ (ERTRAPENEM SODIUM) [Concomitant]
  2. CIPROFLOXACINE [Concomitant]
     Active Substance: CIPROFLOXACIN
  3. CEFTAZIDMINE [Concomitant]
  4. TAVANIC [Concomitant]
     Active Substance: LEVOFLOXACIN
  5. AUGMENTIN [Concomitant]
     Active Substance: AMOXICILLIN\CLAVULANATE POTASSIUM
  6. CLINDAMYCIN [Suspect]
     Active Substance: CLINDAMYCIN\CLINDAMYCIN PHOSPHATE
     Indication: PRODUCT USED FOR UNKNOWN INDICATION
     Dosage: 600 MG 4 IN 1 D,  INTRAVENOUS (NOT OTHERWISE SPECIFIED)
     Route: 042
     Dates: start: 20140327, end: 20140405
  7. ZYVOXID (LINEZOLID) [Concomitant]
  8. MONOPROST EYE WASH [Concomitant]
  9. ACICLOVIR [Concomitant]
     Active Substance: ACYCLOVIR
  10. MEROPENEME [Concomitant]
     Active Substance: MEROPENEM

REACTIONS (1)
  - Acute kidney injury [None]

NARRATIVE: CASE EVENT DATE: 20140430
